FAERS Safety Report 9738422 (Version 3)
Quarter: 2014Q2

REPORT INFORMATION
  Report Type: Report from Study
  Country: TR (occurrence: TR)
  Receive Date: 20131208
  Receipt Date: 20140409
  Transmission Date: 20141212
  Serious: Yes (Hospitalization)
  Sender: FDA-Public Use
  Company Number: TR-ROCHE-1314606

PATIENT
  Age: 53 Year
  Sex: Male
  Weight: 100 kg

DRUGS (6)
  1. PEG-INTERFERON ALFA 2A [Suspect]
     Indication: CHRONIC HEPATITIS C
     Route: 058
     Dates: start: 20130507
  2. RIBAVIRIN [Suspect]
     Indication: CHRONIC HEPATITIS C
     Route: 048
     Dates: start: 20130507
  3. TELAPREVIR [Suspect]
     Indication: CHRONIC HEPATITIS C
     Route: 048
     Dates: start: 20130507, end: 20130729
  4. SERETIDE [Concomitant]
     Indication: ASTHMA
     Route: 055
  5. SPIRIVA [Concomitant]
     Indication: ASTHMA
     Route: 055
  6. TEOKAP [Concomitant]
     Indication: ASTHMA
     Route: 048

REACTIONS (1)
  - Neck mass [Recovered/Resolved]
